FAERS Safety Report 14092566 (Version 1)
Quarter: 2017Q4

REPORT INFORMATION
  Report Type: Spontaneous
  Country: DE (occurrence: DE)
  Receive Date: 20171016
  Receipt Date: 20171016
  Transmission Date: 20180321
  Serious: Yes (Hospitalization, Other)
  Sender: FDA-Public Use
  Company Number: DE-JNJFOC-20171011471

PATIENT
  Sex: Male

DRUGS (2)
  1. REGAINE MAENNER SCHAUM [Suspect]
     Active Substance: MINOXIDIL
     Indication: PRODUCT USED FOR UNKNOWN INDICATION
     Route: 065
  2. REGAINE MAENNER SCHAUM [Suspect]
     Active Substance: MINOXIDIL
     Route: 065

REACTIONS (1)
  - Arrhythmia [Unknown]
